FAERS Safety Report 5838686-7 (Version None)
Quarter: 2008Q3

REPORT INFORMATION
  Report Type: 
  Country: None (occurrence: None)
  Receive Date: 20080808
  Receipt Date: 20080801
  Transmission Date: 20090109
  Serious: Yes (Hospitalization, Other)
  Sender: FDA-Public Use
  Company Number: A0740733A

PATIENT
  Age: 36 Year
  Sex: Female

DRUGS (1)
  1. TYKERB [Suspect]
     Indication: BREAST CANCER
     Route: 048

REACTIONS (4)
  - ABDOMINAL PAIN UPPER [None]
  - MUSCLE SPASMS [None]
  - NAUSEA [None]
  - VOMITING [None]
